FAERS Safety Report 7907475-1 (Version None)
Quarter: 2011Q4

REPORT INFORMATION
  Report Type: 
  Country: None (occurrence: None)
  Receive Date: 20111110
  Receipt Date: 20111107
  Transmission Date: 20120403
  Serious: No
  Sender: FDA-Public Use
  Company Number: US-ELI_LILLY_AND_COMPANY-US201109003380

PATIENT
  Sex: Male
  Weight: 72.562 kg

DRUGS (2)
  1. CIALIS [Suspect]
     Indication: ERECTILE DYSFUNCTION
     Dosage: UNK, QD
     Route: 048
  2. BENADRYL [Concomitant]

REACTIONS (2)
  - NO THERAPEUTIC RESPONSE [None]
  - CYANOPSIA [None]
